FAERS Safety Report 21487283 (Version 4)
Quarter: 2023Q2

REPORT INFORMATION
  Report Type: Spontaneous
  Country: US (occurrence: US)
  Receive Date: 20221020
  Receipt Date: 20230403
  Transmission Date: 20230721
  Serious: No
  Sender: FDA-Public Use
  Company Number: US-BRISTOL-MYERS SQUIBB COMPANY-2022-124305

PATIENT
  Age: 80 Year
  Sex: Male
  Weight: 92.53 kg

DRUGS (2)
  1. REVLIMID [Suspect]
     Active Substance: LENALIDOMIDE
     Indication: Myelodysplastic syndrome
     Route: 048
  2. REVLIMID [Suspect]
     Active Substance: LENALIDOMIDE
     Route: 048
     Dates: start: 20230101

REACTIONS (6)
  - Drug intolerance [Unknown]
  - Rash [Unknown]
  - Blister [Unknown]
  - Pruritus [Unknown]
  - Erythema [Unknown]
  - Rash pruritic [Not Recovered/Not Resolved]
